FAERS Safety Report 4485222-6 (Version None)
Quarter: 2004Q4

REPORT INFORMATION
  Report Type: 
  Country: None (occurrence: None)
  Receive Date: 20041026
  Receipt Date: 20040709
  Transmission Date: 20050328
  Serious: No
  Sender: FDA-Public Use
  Company Number: US-BRISTOL-MYERS SQUIBB COMPANY-12637609

PATIENT
  Age: 40 Year
  Sex: Female
  Weight: 159 kg

DRUGS (7)
  1. GLUCOPHAGE XR [Suspect]
     Indication: DIABETES MELLITUS
     Route: 048
  2. TEVETEN [Concomitant]
  3. DYAZIDE [Concomitant]
     Dosage: DOSE = 12.5/37.5 DAILY
  4. GLUCOTROL [Concomitant]
  5. VITAMIN E [Concomitant]
  6. VITAMIN B-12 [Concomitant]
  7. FLAXSEED [Concomitant]

REACTIONS (1)
  - BLOOD GLUCOSE INCREASED [None]
